FAERS Safety Report 6532518-X (Version None)
Quarter: 2009Q4

REPORT INFORMATION
  Report Type: 
  Country: None (occurrence: None)
  Receive Date: 20091214
  Receipt Date: 20091202
  Transmission Date: 20100525
  Serious: Yes (Other)
  Sender: FDA-Public Use
  Company Number: AEUSA200900256

PATIENT
  Age: 47 Year
  Sex: Female
  Weight: 48.9885 kg

DRUGS (11)
  1. GAMUNEX [Suspect]
     Indication: PRIMARY IMMUNODEFICIENCY SYNDROME
     Dosage: 20 GM; QM; IV
     Route: 042
     Dates: start: 20090201, end: 20090903
  2. GAMUNEX [Suspect]
  3. GAMUNEX [Suspect]
  4. GAMUNEX [Suspect]
  5. GAMUNEX [Suspect]
  6. GAMUNEX [Suspect]
  7. GAMUNEX [Suspect]
  8. NORMAL SALINE [Suspect]
     Indication: PRIMARY IMMUNODEFICIENCY SYNDROME
     Dosage: UNKNOWN; QM; IV
     Route: 042
     Dates: start: 20090201
  9. HERBAL PREPARATION [Concomitant]
  10. ACETAMINOPHEN [Concomitant]
  11. DIPHENHYDRAMINE [Concomitant]

REACTIONS (19)
  - ABDOMINAL PAIN UPPER [None]
  - ANGIOPATHY [None]
  - ARTHRALGIA [None]
  - BLOOD IMMUNOGLOBULIN G INCREASED [None]
  - DECREASED APPETITE [None]
  - DIARRHOEA [None]
  - DIZZINESS [None]
  - DYSPHAGIA [None]
  - FATIGUE [None]
  - HEADACHE [None]
  - HYPERSENSITIVITY [None]
  - LIP SWELLING [None]
  - MUSCULOSKELETAL STIFFNESS [None]
  - MYALGIA [None]
  - OEDEMA PERIPHERAL [None]
  - PAIN IN EXTREMITY [None]
  - PHOTOPHOBIA [None]
  - PRURITUS [None]
  - SERUM SICKNESS [None]
